FAERS Safety Report 8348655-3 (Version None)
Quarter: 2012Q2

REPORT INFORMATION
  Report Type: 
  Country: None (occurrence: None)
  Receive Date: 20120510
  Receipt Date: 20120427
  Transmission Date: 20120825
  Serious: Yes (Hospitalization)
  Sender: FDA-Public Use
  Company Number: US-ELI_LILLY_AND_COMPANY-US201205000212

PATIENT
  Sex: Female

DRUGS (9)
  1. VITAMIN D [Concomitant]
  2. FLUOXETINE [Concomitant]
  3. QUINIDINE HCL [Concomitant]
  4. HUMULIN R [Concomitant]
  5. LEVEMIR [Concomitant]
  6. CARBIDOPA AND LEVODOPA [Concomitant]
  7. FORTEO [Suspect]
     Dosage: 20 UG, UNK
     Route: 065
  8. LEVOTHYROXINE SODIUM [Concomitant]
  9. LOSARTAN POTASSIUM [Concomitant]

REACTIONS (2)
  - HOSPITALISATION [None]
  - INCORRECT STORAGE OF DRUG [None]
